FAERS Safety Report 13752880 (Version 1)
Quarter: 2017Q3

REPORT INFORMATION
  Report Type: Spontaneous
  Country: US (occurrence: US)
  Receive Date: 20170714
  Receipt Date: 20170714
  Transmission Date: 20171127
  Serious: No
  Sender: FDA-Public Use
  Company Number: US-PFIZER INC-2017304802

PATIENT
  Sex: Female

DRUGS (2)
  1. GELATIN [Suspect]
     Active Substance: GELATIN
  2. ADVIL [Suspect]
     Active Substance: IBUPROFEN
     Dosage: UNK
     Dates: start: 201706, end: 201707

REACTIONS (2)
  - Reaction to excipient [Unknown]
  - Gastric disorder [Unknown]

NARRATIVE: CASE EVENT DATE: 201706
